FAERS Safety Report 9031237 (Version 4)
Quarter: 2013Q1

REPORT INFORMATION
  Report Type: Spontaneous
  Country: US (occurrence: US)
  Receive Date: 20130123
  Receipt Date: 20130328
  Transmission Date: 20140127
  Serious: Yes (Death, Hospitalization)
  Sender: FDA-Public Use
  Company Number: US-PFIZER INC-2013029811

PATIENT
  Age: 74 Year
  Sex: Male

DRUGS (1)
  1. GEODON [Suspect]
     Dosage: UNK
     Dates: start: 20120724

REACTIONS (1)
  - Chronic obstructive pulmonary disease [Fatal]
